FAERS Safety Report 4320873-0 (Version None)
Quarter: 2004Q1

REPORT INFORMATION
  Report Type: 
  Country: None (occurrence: None)
  Receive Date: 20040322
  Receipt Date: 20040312
  Transmission Date: 20041129
  Serious: Yes (Death, Other)
  Sender: FDA-Public Use
  Company Number: PHBS2004ZA03592

PATIENT
  Sex: 0

DRUGS (1)
  1. AREDIA [Suspect]
     Indication: POLYGLANDULAR AUTOIMMUNE SYNDROME TYPE II
     Dosage: UNK, ONCE/SINGLE
     Route: 065

REACTIONS (5)
  - ADRENOCORTICAL INSUFFICIENCY CHRONIC [None]
  - BLOOD MAGNESIUM DECREASED [None]
  - HYPOCALCAEMIA [None]
  - HYPOKALAEMIA [None]
  - THYROTOXIC CRISIS [None]
